FAERS Safety Report 25989332 (Version 1)
Quarter: 2025Q4

REPORT INFORMATION
  Report Type: Spontaneous
  Country: CN (occurrence: CN)
  Receive Date: 20251103
  Receipt Date: 20251103
  Transmission Date: 20260119
  Serious: Yes (Life-Threatening, Hospitalization)
  Sender: MYLAN
  Company Number: CN-MYLANLABS-2025M1093320

PATIENT
  Age: 37 Year
  Sex: Female

DRUGS (7)
  1. SILDENAFIL [Suspect]
     Active Substance: SILDENAFIL
     Indication: Pulmonary arterial hypertension
     Dosage: 25 MILLIGRAM, TID, RECEIVED THREE TIMES A DAY
  2. SILDENAFIL [Suspect]
     Active Substance: SILDENAFIL
     Dosage: 25 MILLIGRAM, QD, DOSE REDUCED
  3. SILDENAFIL [Suspect]
     Active Substance: SILDENAFIL
     Dosage: 0.2 MILLIGRAM, BID, REDUCED DOSE
  4. TREPROSTINIL [Suspect]
     Active Substance: TREPROSTINIL
     Indication: Pulmonary arterial hypertension
     Dosage: UNK, RECEIVED AT 1.25 NG/KG/MIN
  5. TREPROSTINIL [Suspect]
     Active Substance: TREPROSTINIL
     Indication: Pulmonary arterial hypertension
     Dosage: UNK, STARTED RECEIVING AT 1.25 NG/KG/MIN FOR A DURATION OF ONE MONTH
  6. DEXAMETHASONE [Suspect]
     Active Substance: DEXAMETHASONE
     Indication: Maternal therapy to enhance foetal lung maturity
     Dosage: UNK
  7. MACITENTAN [Suspect]
     Active Substance: MACITENTAN
     Indication: Pulmonary arterial hypertension
     Dosage: 10 MILLIGRAM, QD

REACTIONS (2)
  - Drug ineffective [Unknown]
  - Maternal exposure during pregnancy [Recovered/Resolved]
